FAERS Safety Report 5941954-1 (Version None)
Quarter: 2008Q4

REPORT INFORMATION
  Report Type: 
  Country: None (occurrence: None)
  Receive Date: 20081105
  Receipt Date: 20081027
  Transmission Date: 20090506
  Serious: Yes (Death, Hospitalization, Disabling)
  Sender: FDA-Public Use
  Company Number: US-MERCK-0807USA01452

PATIENT
  Age: 80 Year
  Sex: Female
  Weight: 45 kg

DRUGS (4)
  1. FOSAMAX [Suspect]
     Indication: OSTEOPOROSIS
     Route: 048
     Dates: start: 20030801, end: 20040701
  2. [THERAPY UNSPECIFIED] [Concomitant]
     Indication: HYPERTENSION
     Route: 065
  3. [THERAPY UNSPECIFIED] [Concomitant]
     Indication: HORMONE REPLACEMENT THERAPY
     Route: 065
  4. COUMADIN [Concomitant]
     Route: 065

REACTIONS (19)
  - BACTERAEMIA [None]
  - BONE FISTULA [None]
  - CANDIDIASIS [None]
  - CARDIAC DISORDER [None]
  - CARDIAC FAILURE CONGESTIVE [None]
  - CLAUSTROPHOBIA [None]
  - DRUG HYPERSENSITIVITY [None]
  - EATING DISORDER [None]
  - HYPERTENSION [None]
  - JAW DISORDER [None]
  - JAW FRACTURE [None]
  - NO THERAPEUTIC RESPONSE [None]
  - OROPHARYNGEAL PAIN [None]
  - OSTEOMYELITIS [None]
  - OSTEONECROSIS [None]
  - PAROXYSMAL ARRHYTHMIA [None]
  - PELVIC FRACTURE [None]
  - PNEUMONIA [None]
  - URTICARIA [None]
